FAERS Safety Report 10055976 (Version 1)
Quarter: 2014Q2

REPORT INFORMATION
  Report Type: Spontaneous
  Country: US (occurrence: None)
  Receive Date: 20140402
  Receipt Date: 20140402
  Transmission Date: 20141212
  Serious: Yes (Life-Threatening, Hospitalization)
  Sender: FDA-Public Use
  Company Number: None

PATIENT
  Age: 62 Year
  Sex: Male
  Weight: 129.2 kg

DRUGS (2)
  1. IBUPROFEN [Suspect]
     Route: 048
     Dates: start: 20120906, end: 20140327
  2. ASPIRIN [Suspect]
     Route: 048
     Dates: start: 20140305

REACTIONS (6)
  - Haematemesis [None]
  - Activated partial thromboplastin time shortened [None]
  - Hypoxia [None]
  - Pulmonary embolism [None]
  - Post procedural complication [None]
  - Nausea [None]
